FAERS Safety Report 8464789-7 (Version None)
Quarter: 2012Q2

REPORT INFORMATION
  Report Type: 
  Country: None (occurrence: None)
  Receive Date: 20120619
  Receipt Date: 20120604
  Transmission Date: 20120825
  Serious: Yes (Other)
  Sender: FDA-Public Use
  Company Number: 2012P1038050

PATIENT
  Age: 54 Year
  Sex: Female

DRUGS (1)
  1. ALDARA [Suspect]
     Indication: BASAL CELL CARCINOMA
     Dosage: QD;TOP
     Route: 061

REACTIONS (5)
  - VISION BLURRED [None]
  - PAIN [None]
  - HAEMORRHAGE [None]
  - EYELID OEDEMA [None]
  - RETINAL VEIN OCCLUSION [None]
